FAERS Safety Report 9484103 (Version 2)
Quarter: 2013Q3

REPORT INFORMATION
  Report Type: Spontaneous
  Country: CA (occurrence: CA)
  Receive Date: 20130828
  Receipt Date: 20130828
  Transmission Date: 20140515
  Serious: Yes (Other)
  Sender: FDA-Public Use
  Company Number: CA-AMGEN-KDL351189

PATIENT
  Age: 28 Year
  Sex: Female
  Weight: 45.4 kg

DRUGS (1)
  1. ENBREL [Suspect]
     Indication: RHEUMATOID ARTHRITIS
     Dosage: UNK UNK, QWK
     Route: 065
     Dates: start: 20090511

REACTIONS (14)
  - Pulmonary congestion [Unknown]
  - Ear congestion [Unknown]
  - Dry mouth [Unknown]
  - Paranasal sinus hypersecretion [Unknown]
  - Myalgia [Unknown]
  - Pain [Unknown]
  - Pyrexia [Unknown]
  - Headache [Unknown]
  - Nausea [Unknown]
  - Injection site swelling [Unknown]
  - Sinusitis [Unknown]
  - Injection site pain [Unknown]
  - Injection site erythema [Unknown]
  - Injection site pruritus [Unknown]
